FAERS Safety Report 10740077 (Version 1)
Quarter: 2015Q1

REPORT INFORMATION
  Report Type: Spontaneous
  Country: US (occurrence: US)
  Receive Date: 20150127
  Receipt Date: 20150127
  Transmission Date: 20150721
  Serious: Yes (Hospitalization)
  Sender: FDA-Public Use
  Company Number: US-JNJFOC-20150111100

PATIENT
  Age: 34 Year
  Sex: Female
  Weight: 62.01 kg

DRUGS (2)
  1. ACETAMINOPHEN ADULT EXTRA STRENGTH [Suspect]
     Active Substance: ACETAMINOPHEN
     Indication: SUICIDE ATTEMPT
     Route: 048
  2. ACETAMINOPHEN ADULT EXTRA STRENGTH [Suspect]
     Active Substance: ACETAMINOPHEN
     Route: 048

REACTIONS (7)
  - International normalised ratio decreased [None]
  - Aspartate aminotransferase increased [None]
  - Alanine aminotransferase increased [None]
  - Transaminases increased [Recovering/Resolving]
  - Intentional overdose [Recovering/Resolving]
  - Suicide attempt [None]
  - Exposure via ingestion [None]
